FAERS Safety Report 25969244 (Version 1)
Quarter: 2025Q4

REPORT INFORMATION
  Report Type: Report from Study
  Country: EU (occurrence: EU)
  Receive Date: 20251028
  Receipt Date: 20251028
  Transmission Date: 20260117
  Serious: Yes (Hospitalization, Other)
  Sender: ELI LILLY AND COMPANY
  Company Number: EU-ELI_LILLY_AND_COMPANY-ES202504002943

PATIENT
  Age: 52 Year
  Sex: Female

DRUGS (8)
  1. ABEMACICLIB [Suspect]
     Active Substance: ABEMACICLIB
     Indication: Breast cancer
     Dosage: 150 MG, BID
     Route: 048
     Dates: start: 202403
  2. ABEMACICLIB [Suspect]
     Active Substance: ABEMACICLIB
     Dosage: 150 MG, BID
     Route: 048
  3. ABEMACICLIB [Suspect]
     Active Substance: ABEMACICLIB
     Dosage: 100 MG, UNKNOWN
     Route: 048
     Dates: start: 202504
  4. ABEMACICLIB [Suspect]
     Active Substance: ABEMACICLIB
     Dosage: 100 MG, UNKNOWN
     Route: 048
  5. TAMOXIFEN [Suspect]
     Active Substance: TAMOXIFEN
     Indication: Breast cancer
     Dosage: UNK UNK, UNKNOWN
     Route: 065
  6. LETROZOLE [Concomitant]
     Active Substance: LETROZOLE
     Indication: Product used for unknown indication
     Dosage: UNK
  7. EXEMESTANE [Concomitant]
     Active Substance: EXEMESTANE
     Indication: Product used for unknown indication
     Dosage: UNK
  8. CHONDROSAN [CHONDROITIN SULFATE] [Concomitant]
     Indication: Product used for unknown indication
     Dosage: UNK

REACTIONS (24)
  - Decreased immune responsiveness [Recovered/Resolved]
  - Platelet count decreased [Recovered/Resolved]
  - Anal fissure [Recovering/Resolving]
  - Hair growth abnormal [Recovering/Resolving]
  - Onychoclasis [Recovering/Resolving]
  - Onychomycosis [Recovering/Resolving]
  - Nail injury [Recovering/Resolving]
  - Contusion [Recovering/Resolving]
  - Haemorrhoids [Recovering/Resolving]
  - Weight increased [Recovering/Resolving]
  - Abdominal pain upper [Recovering/Resolving]
  - Abdominal distension [Recovering/Resolving]
  - Ovarian disorder [Recovering/Resolving]
  - Daydreaming [Recovering/Resolving]
  - Swelling [Recovering/Resolving]
  - Tachycardia [Recovering/Resolving]
  - Stress [Recovering/Resolving]
  - Tension [Recovering/Resolving]
  - Dry skin [Recovering/Resolving]
  - Fatigue [Recovering/Resolving]
  - White blood cell count decreased [Recovered/Resolved]
  - Pruritus [Recovering/Resolving]
  - Alopecia [Recovering/Resolving]
  - Diarrhoea [Recovering/Resolving]
